FAERS Safety Report 6109965-3 (Version None)
Quarter: 2009Q1

REPORT INFORMATION
  Report Type: 
  Country: None (occurrence: None)
  Receive Date: 20090310
  Receipt Date: 20081010
  Transmission Date: 20090719
  Serious: No
  Sender: FDA-Public Use
  Company Number: A0751282A

PATIENT
  Age: 47 Year
  Sex: Male

DRUGS (2)
  1. NICORETTE [Suspect]
  2. COMMIT [Suspect]

REACTIONS (1)
  - DRUG INEFFECTIVE [None]
